FAERS Safety Report 12994147 (Version 1)
Quarter: 2016Q4

REPORT INFORMATION
  Report Type: Spontaneous
  Country: SA (occurrence: US)
  Receive Date: 20161202
  Receipt Date: 20161202
  Transmission Date: 20170207
  Serious: No
  Sender: FDA-Public Use
  Company Number: SA-PFIZER INC-2016560839

PATIENT

DRUGS (1)
  1. XALKORI [Suspect]
     Active Substance: CRIZOTINIB
     Dosage: UNK
     Dates: start: 2014

REACTIONS (3)
  - Rash erythematous [Recovered/Resolved]
  - Rash generalised [Recovered/Resolved]
  - Dysphagia [Recovered/Resolved]
